FAERS Safety Report 6433102-9 (Version None)
Quarter: 2009Q4

REPORT INFORMATION
  Report Type: 
  Country: None (occurrence: None)
  Receive Date: 20091105
  Receipt Date: 20091021
  Transmission Date: 20100525
  Serious: Yes (Hospitalization, Other)
  Sender: FDA-Public Use
  Company Number: AUR-APL-2009-01009

PATIENT
  Age: 45 Year
  Sex: Male

DRUGS (3)
  1. AMLODIPINE [Suspect]
     Indication: SUICIDE ATTEMPT
     Dosage: 20MG - X 1 -
  2. NAPROXEN SODIUM [Suspect]
     Indication: SUICIDE ATTEMPT
     Dosage: 2200MG - X1 -
  3. COLCHICINIUM [Suspect]
     Indication: SUICIDE ATTEMPT
     Dosage: 5MG - X1 -

REACTIONS (4)
  - CHROMATURIA [None]
  - DEPRESSED LEVEL OF CONSCIOUSNESS [None]
  - LEUKOCYTOSIS [None]
  - SUICIDE ATTEMPT [None]
